FAERS Safety Report 21899349 (Version 3)
Quarter: 2023Q2

REPORT INFORMATION
  Report Type: Spontaneous
  Country: IN (occurrence: IN)
  Receive Date: 20230123
  Receipt Date: 20230530
  Transmission Date: 20230722
  Serious: Yes (Hospitalization, Other)
  Sender: FDA-Public Use
  Company Number: IN-PFIZER INC-2021046540

PATIENT
  Age: 62 Year
  Sex: Female

DRUGS (6)
  1. PALBOCICLIB [Suspect]
     Active Substance: PALBOCICLIB
     Indication: Metastatic renal cell carcinoma
     Dosage: 125 MG ONCE A DAY (ALONG WITH FOOD) (3 WEEKS ON AND 1 WEEK OFF)
     Route: 048
     Dates: start: 20200515
  2. PALBOCICLIB [Suspect]
     Active Substance: PALBOCICLIB
     Indication: Breast cancer metastatic
     Dosage: 125 MG, 1X/DAY
     Route: 048
     Dates: start: 20200527
  3. PALBOCICLIB [Suspect]
     Active Substance: PALBOCICLIB
     Dosage: 100MG, 1X/DAY
     Route: 048
     Dates: start: 20230520
  4. LETRONAT [Concomitant]
     Dosage: 2.5 MG, 1X/DAY (1-0-0)
     Route: 048
     Dates: start: 20200514
  5. ONCOLIFE PLUS [Concomitant]
     Dosage: 0-1-0 AFTER FOOD
  6. SELOKEN XL [Concomitant]
     Dosage: 100 MG(1-0-0)

REACTIONS (8)
  - Cholecystitis [Unknown]
  - Laparotomy [Unknown]
  - Cervicitis [Unknown]
  - Neoplasm progression [Unknown]
  - Second primary malignancy [Unknown]
  - Endometrial cancer [Unknown]
  - Full blood count decreased [Unknown]
  - Off label use [Unknown]

NARRATIVE: CASE EVENT DATE: 20200515
